FAERS Safety Report 7867997-9 (Version None)
Quarter: 2011Q4

REPORT INFORMATION
  Report Type: 
  Country: None (occurrence: None)
  Receive Date: 20111028
  Receipt Date: 20111025
  Transmission Date: 20120403
  Serious: Yes (Other)
  Sender: FDA-Public Use
  Company Number: BR-BAYER-2011-095043

PATIENT
  Age: 61 Year
  Sex: Female

DRUGS (3)
  1. MODURETIC 5-50 [Concomitant]
  2. ULTRAVIST 150 [Suspect]
     Indication: COMPUTERISED TOMOGRAM ABDOMEN
     Dosage: 100 ML, ONCE
     Route: 042
     Dates: start: 20110203, end: 20110203
  3. ATENOLOL [Concomitant]

REACTIONS (3)
  - DYSPHAGIA [None]
  - URTICARIA [None]
  - LIP OEDEMA [None]
